FAERS Safety Report 8272190-4 (Version None)
Quarter: 2012Q2

REPORT INFORMATION
  Report Type: 
  Country: None (occurrence: None)
  Receive Date: 20120410
  Receipt Date: 20120402
  Transmission Date: 20120825
  Serious: Yes (Hospitalization)
  Sender: FDA-Public Use
  Company Number: JP-ASTRAZENECA-2012SE22889

PATIENT
  Sex: Female

DRUGS (4)
  1. INDAPAMIDE [Suspect]
     Indication: HYPERTENSION
     Route: 048
     Dates: end: 20111101
  2. CORDARONE [Suspect]
     Indication: TACHYCARDIA
     Route: 048
     Dates: end: 20111101
  3. ACEBUTOLOL [Suspect]
     Indication: HYPERTENSION
     Dosage: EVERY DAY
     Route: 048
     Dates: end: 20111101
  4. CANDESARTAN CILEXETIL [Suspect]
     Indication: HYPERTENSION
     Route: 048
     Dates: end: 20111101

REACTIONS (2)
  - HYPOTENSION [None]
  - MALAISE [None]
